FAERS Safety Report 10098735 (Version 1)
Quarter: 2014Q2

REPORT INFORMATION
  Report Type: Spontaneous
  Country: GB (occurrence: GB)
  Receive Date: 20140423
  Receipt Date: 20140423
  Transmission Date: 20141212
  Serious: Yes (Death, Other)
  Sender: FDA-Public Use
  Company Number: GB-BAXTER-2014BAX019953

PATIENT
  Age: 76 Year
  Sex: 0

DRUGS (1)
  1. KIOVIG 100 MG/ML SOLUTION FOR INFUSION [Suspect]
     Indication: MYASTHENIC SYNDROME
     Route: 042

REACTIONS (2)
  - Drug ineffective [Unknown]
  - Sepsis [Fatal]
